FAERS Safety Report 17491864 (Version 1)
Quarter: 2020Q1

REPORT INFORMATION
  Report Type: Spontaneous
  Country: US (occurrence: US)
  Receive Date: 20200303
  Receipt Date: 20200303
  Transmission Date: 20200409
  Serious: No
  Sender: FDA-Public Use
  Company Number: US-NOVOPROD-669322

PATIENT
  Sex: Female

DRUGS (2)
  1. VICTOZA [Suspect]
     Active Substance: LIRAGLUTIDE
     Indication: DIABETES MELLITUS MANAGEMENT
     Dosage: 1.8 MG
     Route: 058
     Dates: start: 2018, end: 2018
  2. VICTOZA [Suspect]
     Active Substance: LIRAGLUTIDE
     Indication: WEIGHT DECREASED

REACTIONS (1)
  - Weight loss poor [Recovered/Resolved]

NARRATIVE: CASE EVENT DATE: 2018
